FAERS Safety Report 5496621-8 (Version None)
Quarter: 2007Q4

REPORT INFORMATION
  Report Type: 
  Country: None (occurrence: None)
  Receive Date: 20071025
  Receipt Date: 20070807
  Transmission Date: 20080405
  Serious: No
  Sender: FDA-Public Use
  Company Number: A0660225A

PATIENT
  Age: 62 Year
  Sex: Male

DRUGS (5)
  1. ADVAIR DISKUS 100/50 [Suspect]
     Indication: CHRONIC OBSTRUCTIVE PULMONARY DISEASE
     Route: 055
  2. WELLBUTRIN [Concomitant]
  3. ZOLOFT [Concomitant]
  4. XANAX [Concomitant]
  5. LOTREL [Concomitant]

REACTIONS (2)
  - LARYNGITIS [None]
  - THROAT LESION [None]
